FAERS Safety Report 12607424 (Version 1)
Quarter: 2016Q3

REPORT INFORMATION
  Report Type: Spontaneous
  Country: GB (occurrence: GB)
  Receive Date: 20160729
  Receipt Date: 20160729
  Transmission Date: 20161109
  Serious: Yes (Hospitalization)
  Sender: FDA-Public Use
  Company Number: GB-PFIZER INC-2016366394

PATIENT
  Sex: Male

DRUGS (21)
  1. DIAZEPAM. [Suspect]
     Active Substance: DIAZEPAM
     Dosage: 2 MG, 1X/DAY (AT NIGHT)
     Route: 048
  2. ATORVASTATIN [Concomitant]
     Active Substance: ATORVASTATIN
  3. AZITHROMYCIN ANHYDROUS. [Concomitant]
     Active Substance: AZITHROMYCIN ANHYDROUS
  4. PARACETAMOL [Concomitant]
     Active Substance: ACETAMINOPHEN
  5. THIAMINE. [Concomitant]
     Active Substance: THIAMINE
  6. SENNA /00142201/ [Concomitant]
     Active Substance: SENNA LEAF
  7. ASPIRIN. [Concomitant]
     Active Substance: ASPIRIN
  8. CARBOCISTEINE [Concomitant]
     Active Substance: CARBOCYSTEINE
  9. DOCUSATE [Concomitant]
     Active Substance: DOCUSATE
  10. SYMBICORT [Concomitant]
     Active Substance: BUDESONIDE\FORMOTEROL FUMARATE DIHYDRATE
  11. OXYCODONE [Suspect]
     Active Substance: OXYCODONE
     Dosage: 10 MG, EVERY 4 HOURS
     Route: 048
  12. MOVICOL [Concomitant]
     Active Substance: POLYETHYLENE GLYCOL 3350\POTASSIUM CHLORIDE\SODIUM BICARBONATE\SODIUM CHLORIDE
  13. PREGABALIN. [Suspect]
     Active Substance: PREGABALIN
     Dosage: 75 MG, 2X/DAY
     Route: 048
  14. OXYCODONE [Suspect]
     Active Substance: OXYCODONE
     Dosage: 15 MG, 2X/DAY
     Route: 048
  15. TAMSULOSIN [Suspect]
     Active Substance: TAMSULOSIN
     Dosage: 400 UG, 1X/DAY
     Route: 048
  16. GLYCERYL TRINITRATE [Concomitant]
     Active Substance: NITROGLYCERIN
  17. SALBUTAMOL [Concomitant]
     Active Substance: ALBUTEROL
  18. TRAZODONE [Suspect]
     Active Substance: TRAZODONE HYDROCHLORIDE
     Dosage: 100 MG, 1X/DAY (AT NIGHT)
     Route: 048
  19. LIDOCAINE. [Concomitant]
     Active Substance: LIDOCAINE
  20. MIRTAZAPINE. [Concomitant]
     Active Substance: MIRTAZAPINE
  21. OMEPRAZOLE. [Concomitant]
     Active Substance: OMEPRAZOLE

REACTIONS (2)
  - Circulatory collapse [Recovered/Resolved]
  - Somnolence [Recovered/Resolved]
